FAERS Safety Report 8824373 (Version 2)
Quarter: 2012Q4

REPORT INFORMATION
  Report Type: 
  Country: US (occurrence: US)
  Receive Date: 20121004
  Receipt Date: 20121023
  Transmission Date: 20130627
  Serious: No
  Sender: FDA-Public Use
  Company Number: US-009507513-1209USA011613

PATIENT
  Sex: Male

DRUGS (1)
  1. PEGINTRON [Suspect]

REACTIONS (5)
  - Chills [Unknown]
  - Skin wrinkling [Unknown]
  - Paraesthesia [Unknown]
  - Product quality issue [Unknown]
  - Drug dose omission [Unknown]
